FAERS Safety Report 4686737-8 (Version None)
Quarter: 2005Q2

REPORT INFORMATION
  Report Type: 
  Country: None (occurrence: None)
  Receive Date: 20050606
  Receipt Date: 20050524
  Transmission Date: 20051028
  Serious: Yes (Life-Threatening, Hospitalization)
  Sender: FDA-Public Use
  Company Number: FR_050506479

PATIENT
  Age: 30 Year
  Sex: Female

DRUGS (6)
  1. PROZAC [Suspect]
     Dosage: 20 MG/ 2 DAY
     Dates: end: 20050502
  2. SOLIAN (AMISULPRDE) [Concomitant]
  3. PRAZEPAM [Concomitant]
  4. OXAZEPAM [Concomitant]
  5. IMOVANE (ZOPICLONE) [Concomitant]
  6. HEPTAMINOL [Concomitant]

REACTIONS (2)
  - HYPERTHYROIDISM [None]
  - SEROTONIN SYNDROME [None]
